FAERS Safety Report 7631268-6 (Version None)
Quarter: 2011Q3

REPORT INFORMATION
  Report Type: 
  Country: None (occurrence: None)
  Receive Date: 20110725
  Receipt Date: 20110720
  Transmission Date: 20111222
  Serious: Yes (Life-Threatening, Hospitalization, Other)
  Sender: FDA-Public Use
  Company Number: US-ELI_LILLY_AND_COMPANY-US200911005828

PATIENT
  Sex: Female
  Weight: 96.145 kg

DRUGS (4)
  1. EXENATIDE [Suspect]
     Dosage: UNK, UNKNOWN
     Route: 065
     Dates: start: 20070220, end: 20070329
  2. ACTOS [Concomitant]
  3. EFFEXOR [Concomitant]
     Dosage: 50 MG, 2/D
  4. SYNTHROID [Concomitant]
     Dosage: 50 UG, UNKNOWN
     Route: 065

REACTIONS (13)
  - SYSTEMIC INFLAMMATORY RESPONSE SYNDROME [None]
  - ACUTE RESPIRATORY DISTRESS SYNDROME [None]
  - SEPSIS [None]
  - PANCREATITIS NECROTISING [None]
  - PANCREATITIS CHRONIC [None]
  - DEEP VEIN THROMBOSIS [None]
  - CLOSTRIDIUM DIFFICILE COLITIS [None]
  - BLINDNESS UNILATERAL [None]
  - PANCREATITIS ACUTE [None]
  - RENAL FAILURE ACUTE [None]
  - HYPERTRIGLYCERIDAEMIA [None]
  - RESPIRATORY FAILURE [None]
  - VOCAL CORD PARESIS [None]
